FAERS Safety Report 13522243 (Version 1)
Quarter: 2017Q2

REPORT INFORMATION
  Report Type: Spontaneous
  Country: US (occurrence: US)
  Receive Date: 20170508
  Receipt Date: 20170508
  Transmission Date: 20170830
  Serious: Yes (Other)
  Sender: FDA-Public Use
  Company Number: US-FRESENIUS MEDICAL CARE RENAL THERAPIES GROUP-FMC-1703-000381

PATIENT
  Age: 87 Year
  Sex: Male

DRUGS (1)
  1. DELFLEX [Suspect]
     Active Substance: CALCIUM CHLORIDE\DEXTROSE\MAGNESIUM CHLORIDE\SODIUM CHLORIDE\SODIUM LACTATE
     Indication: END STAGE RENAL DISEASE
     Dosage: 1.5%, 2.5% 4.25% ; 5X 2.5L , 9 HOURS  7 TIMES PER WEEK.
     Route: 033
     Dates: start: 20161013

REACTIONS (2)
  - Peritonitis bacterial [Recovering/Resolving]
  - Hypervolaemia [Unknown]

NARRATIVE: CASE EVENT DATE: 20170221
